FAERS Safety Report 18544434 (Version 2)
Quarter: 2020Q4

REPORT INFORMATION
  Report Type: Spontaneous
  Country: US (occurrence: US)
  Receive Date: 20201125
  Receipt Date: 20201127
  Transmission Date: 20210114
  Serious: Yes (Hospitalization, Other)
  Sender: FDA-Public Use
  Company Number: US-PFIZER INC-2020458535

PATIENT
  Age: 15 Year
  Sex: Female

DRUGS (2)
  1. NAB-PACLITAXEL [Suspect]
     Active Substance: PACLITAXEL
     Indication: ACINAR CELL CARCINOMA OF PANCREAS
     Dosage: 125 MG/M2, WEEKLY (FOR 3 WEEKS WITH A 1-WEEK REST)
     Route: 042
  2. GEMCITABINE HYDROCHLORIDE. [Suspect]
     Active Substance: GEMCITABINE HYDROCHLORIDE
     Indication: ACINAR CELL CARCINOMA OF PANCREAS
     Dosage: 1000 MG/M2, WEEKLY (FOR 3 WEEKS WITH A 1-WEEK REST)
     Route: 042

REACTIONS (3)
  - Toxicity to various agents [Unknown]
  - Pyrexia [Unknown]
  - Neutropenia [Unknown]
